FAERS Safety Report 21922101 (Version 1)
Quarter: 2023Q1

REPORT INFORMATION
  Report Type: Spontaneous
  Country: JP (occurrence: JP)
  Receive Date: 20230128
  Receipt Date: 20230128
  Transmission Date: 20230417
  Serious: Yes (Hospitalization)
  Sender: FDA-Public Use
  Company Number: JP-ABBVIE-4285444

PATIENT
  Age: 34 Year
  Sex: Male

DRUGS (5)
  1. CARBIDOPA\LEVODOPA [Suspect]
     Active Substance: CARBIDOPA\LEVODOPA
     Indication: Parkinson^s disease
  2. CARBIDOPA\LEVODOPA [Suspect]
     Active Substance: CARBIDOPA\LEVODOPA
  3. PRAMIPEXOLE [Concomitant]
     Active Substance: PRAMIPEXOLE
     Indication: Parkinson^s disease
     Dosage: 0.75 MILLIGRAM
  4. LEVODOPA [Concomitant]
     Active Substance: LEVODOPA
     Indication: Parkinson^s disease
  5. TRIHEXYPHENIDYL HYDROCHLORIDE [Concomitant]
     Active Substance: TRIHEXYPHENIDYL HYDROCHLORIDE
     Indication: Parkinson^s disease

REACTIONS (13)
  - Persecutory delusion [Unknown]
  - Schizophrenia [Unknown]
  - On and off phenomenon [Recovering/Resolving]
  - Hallucination, auditory [Recovering/Resolving]
  - Musculoskeletal stiffness [Recovering/Resolving]
  - Postural reflex impairment [Unknown]
  - Tremor [Recovering/Resolving]
  - Gait disturbance [Recovering/Resolving]
  - Persecutory delusion [Recovering/Resolving]
  - Parkinsonian gait [Unknown]
  - Posture abnormal [Recovering/Resolving]
  - Hallucination, auditory [Unknown]
  - Bradykinesia [Recovering/Resolving]
